FAERS Safety Report 11441773 (Version 2)
Quarter: 2015Q3

REPORT INFORMATION
  Report Type: Spontaneous
  Country: BR (occurrence: BR)
  Receive Date: 20150901
  Receipt Date: 20150923
  Transmission Date: 20151125
  Serious: Yes (Other)
  Sender: FDA-Public Use
  Company Number: BR-PFIZER INC-2015286659

PATIENT
  Age: 81 Year
  Sex: Female
  Weight: 60 kg

DRUGS (8)
  1. TIMOLOL. [Concomitant]
     Active Substance: TIMOLOL
     Indication: INTRAOCULAR PRESSURE INCREASED
     Dosage: 2 GTT, 1 DROP IN EACH EYE TWICE A DAY
     Route: 047
     Dates: start: 201502
  2. SELOZOK [Concomitant]
     Active Substance: METOPROLOL SUCCINATE
     Indication: CARDIAC DISORDER
     Dosage: 1 TABLET, DAILY
  3. XARELTO [Concomitant]
     Active Substance: RIVAROXABAN
     Indication: ANTICOAGULANT THERAPY
     Dosage: 1 TABLET, DAILY
     Dates: start: 201502
  4. DIPIRONA [Concomitant]
     Active Substance: METAMIZOLE
     Indication: PAIN
     Dosage: UNK, AS NEEDED
  5. DORZOLAMIDE [Concomitant]
     Active Substance: DORZOLAMIDE
     Indication: INTRAOCULAR PRESSURE INCREASED
     Dosage: 2 GTT, 1 DROP IN EACH EYE TWICE A DAY
     Route: 047
     Dates: start: 2010
  6. XALATAN [Suspect]
     Active Substance: LATANOPROST
     Indication: INTRAOCULAR PRESSURE INCREASED
     Dosage: 1 DROP IN EACH EYE ONCE A DAY
     Route: 047
     Dates: start: 201502
  7. DIOVAN [Concomitant]
     Active Substance: VALSARTAN
     Indication: HYPERTENSION
     Dosage: 1 TABLET, DAILY
     Dates: start: 2010
  8. METFORMIN [Concomitant]
     Active Substance: METFORMIN HYDROCHLORIDE
     Indication: DIABETES MELLITUS
     Dosage: 1 TABLET, DAILY

REACTIONS (1)
  - Drug ineffective [Unknown]
